FAERS Safety Report 13277162 (Version 1)
Quarter: 2017Q1

REPORT INFORMATION
  Report Type: Spontaneous
  Country: ES (occurrence: ES)
  Receive Date: 20170228
  Receipt Date: 20170228
  Transmission Date: 20170428
  Serious: Yes (Hospitalization)
  Sender: FDA-Public Use
  Company Number: ES-JNJFOC-20170219950

PATIENT
  Age: 74 Year
  Sex: Female

DRUGS (2)
  1. DUROGESIC [Suspect]
     Active Substance: FENTANYL
     Indication: PAIN
     Route: 062
     Dates: start: 20151112, end: 20160327
  2. DASABUVIR [Concomitant]
     Active Substance: DASABUVIR
     Indication: CHRONIC HEPATITIS C
     Dosage: 56 TABLETS
     Route: 048
     Dates: start: 20160311, end: 20160408

REACTIONS (7)
  - Toxicity to various agents [Unknown]
  - Dizziness [Unknown]
  - Drug interaction [Unknown]
  - Loss of consciousness [Unknown]
  - Confusional state [Recovered/Resolved]
  - Cognitive disorder [Unknown]
  - Tremor [Unknown]

NARRATIVE: CASE EVENT DATE: 20160323
